FAERS Safety Report 5168628-1 (Version None)
Quarter: 2006Q4

REPORT INFORMATION
  Report Type: 
  Country: None (occurrence: None)
  Receive Date: 20061201
  Receipt Date: 20061120
  Transmission Date: 20070319
  Serious: Yes (Other)
  Sender: FDA-Public Use
  Company Number: 2006144194

PATIENT
  Age: 58 Year
  Sex: Female
  Weight: 58.9676 kg

DRUGS (9)
  1. CHANTIX [Suspect]
     Indication: EX-SMOKER
     Dosage: 0.5 MG
     Dates: start: 20061022, end: 20061101
  2. LAMICTAL [Concomitant]
  3. DESYREL [Concomitant]
  4. ZOLOFT [Concomitant]
  5. BELLADONNA ALKALOIDS (BELLADONNA ALKALOIDS) [Concomitant]
  6. LIBRAX [Concomitant]
  7. FOLIC ACID [Concomitant]
  8. LESCOL [Concomitant]
  9. KLONOPIN [Concomitant]

REACTIONS (10)
  - AGGRESSION [None]
  - ALCOHOL USE [None]
  - BLOOD ALCOHOL INCREASED [None]
  - DRUG INEFFECTIVE [None]
  - FALL [None]
  - LOSS OF CONSCIOUSNESS [None]
  - NAUSEA [None]
  - SLEEP DISORDER [None]
  - SOMNOLENCE [None]
  - TREATMENT NONCOMPLIANCE [None]
